FAERS Safety Report 6816493-6 (Version None)
Quarter: 2010Q3

REPORT INFORMATION
  Report Type: 
  Country: None (occurrence: None)
  Receive Date: 20100705
  Receipt Date: 20100628
  Transmission Date: 20110219
  Serious: Yes (Hospitalization)
  Sender: FDA-Public Use
  Company Number: PHHO2010IT09846

PATIENT
  Sex: Male
  Weight: 66 kg

DRUGS (4)
  1. TASIGNA [Suspect]
     Indication: ACUTE LYMPHOCYTIC LEUKAEMIA
     Dosage: 800 MG/DAY
     Route: 048
     Dates: start: 20100513, end: 20100516
  2. MOXIFLOXACIN [Concomitant]
     Indication: INFECTION PROPHYLAXIS
  3. CARDIOASPIRINA [Concomitant]
     Indication: CARDIOVASCULAR EVENT PROPHYLAXIS
  4. BISOPROLOL [Concomitant]
     Indication: CARDIOVASCULAR EVENT PROPHYLAXIS

REACTIONS (3)
  - ARRHYTHMIA [None]
  - ELECTROCARDIOGRAM QT PROLONGED [None]
  - SYNCOPE [None]
